FAERS Safety Report 10176889 (Version 5)
Quarter: 2014Q3

REPORT INFORMATION
  Report Type: Spontaneous
  Country: US (occurrence: None)
  Receive Date: 20140514
  Receipt Date: 20140721
  Transmission Date: 20150326
  Serious: Yes (Hospitalization, Other)
  Sender: FDA-Public Use
  Company Number: ADR-2014-00803

PATIENT
  Age: 41 Year
  Sex: Male

DRUGS (2)
  1. BACLOFEN. [Suspect]
     Active Substance: BACLOFEN
     Indication: MUSCLE SPASTICITY
  2. LIORESAL [Suspect]
     Active Substance: BACLOFEN
     Indication: MUSCLE SPASTICITY
     Dosage: 425MCG/ML (SEE B5)?
     Dates: start: 1993

REACTIONS (17)
  - Pain [None]
  - Adhesion [None]
  - Device kink [None]
  - No therapeutic response [None]
  - Motor dysfunction [None]
  - Hypertonia [None]
  - Urosepsis [None]
  - Device dislocation [None]
  - Condition aggravated [None]
  - Device connection issue [None]
  - Muscle spasms [None]
  - Tremor [None]
  - Body temperature fluctuation [None]
  - Needle issue [None]
  - Activities of daily living impaired [None]
  - Erythema [None]
  - Urinary tract infection [None]
